FAERS Safety Report 4294180-9 (Version None)
Quarter: 2004Q1

REPORT INFORMATION
  Report Type: 
  Country: None (occurrence: None)
  Receive Date: 20040213
  Receipt Date: 20040116
  Transmission Date: 20041129
  Serious: Yes (Hospitalization)
  Sender: FDA-Public Use
  Company Number: FR-BRISTOL-MYERS SQUIBB COMPANY-12479986

PATIENT
  Age: 73 Year
  Sex: Female
  Weight: 63 kg

DRUGS (4)
  1. SKENAN PROL RELEASE GRAN CAPS 30 MG [Suspect]
     Dosage: INITIALLY STOPPED 22-NOV-03,RE-INTRODUCED ON 29-NOV-03,STOPPED AGAIN ON 30-NOV-03
     Route: 048
     Dates: start: 20030901, end: 20031122
  2. AMIKLIN INJ [Suspect]
     Route: 042
     Dates: start: 20031117, end: 20031121
  3. PERFALGAN [Suspect]
     Dosage: DOSING:1 GRAM - 10 MG/ML SOLUTION FOR INFUSION.
     Route: 042
     Dates: start: 20031117
  4. CEFTRIAXONE [Concomitant]
     Dates: start: 20031117, end: 20031126

REACTIONS (8)
  - BRONCHOSPASM [None]
  - CONFUSIONAL STATE [None]
  - DEHYDRATION [None]
  - INTESTINAL OBSTRUCTION [None]
  - PYELONEPHRITIS ACUTE [None]
  - RENAL FAILURE ACUTE [None]
  - RESPIRATORY FAILURE [None]
  - URINARY RETENTION [None]
